FAERS Safety Report 5896344-7 (Version None)
Quarter: 2008Q3

REPORT INFORMATION
  Report Type: 
  Country: None (occurrence: None)
  Receive Date: 20080924
  Receipt Date: 20080128
  Transmission Date: 20090109
  Serious: Yes (Other)
  Sender: FDA-Public Use
  Company Number: US-ASTRAZENECA-2007UW21479

PATIENT
  Age: 484 Month
  Sex: Female

DRUGS (6)
  1. SEROQUEL [Suspect]
     Indication: ANXIETY
     Route: 048
     Dates: start: 20030925, end: 20031112
  2. SEROQUEL [Suspect]
     Indication: INSOMNIA
     Route: 048
     Dates: start: 20030925, end: 20031112
  3. SEROQUEL [Suspect]
     Indication: DEPRESSION
     Route: 048
     Dates: start: 20030925, end: 20031112
  4. SEROQUEL [Suspect]
     Route: 048
     Dates: start: 20031201, end: 20040301
  5. SEROQUEL [Suspect]
     Route: 048
     Dates: start: 20031201, end: 20040301
  6. SEROQUEL [Suspect]
     Route: 048
     Dates: start: 20031201, end: 20040301

REACTIONS (2)
  - DIABETES MELLITUS [None]
  - DIABETIC COMA [None]
